FAERS Safety Report 17537699 (Version 1)
Quarter: 2020Q1

REPORT INFORMATION
  Report Type: Spontaneous
  Country: CH (occurrence: CH)
  Receive Date: 20200313
  Receipt Date: 20200313
  Transmission Date: 20200409
  Serious: Yes (Other)
  Sender: FDA-Public Use
  Company Number: CH-GYP-000003

PATIENT
  Age: 48 Year

DRUGS (2)
  1. RITUXIMAB. [Suspect]
     Active Substance: RITUXIMAB
     Indication: OPTIC NEURITIS
     Route: 065
  2. PREDNISONE. [Suspect]
     Active Substance: PREDNISONE
     Indication: OPTIC NEURITIS
     Route: 048

REACTIONS (3)
  - Drug ineffective [Unknown]
  - Optic neuritis [Recovering/Resolving]
  - Disease recurrence [Recovering/Resolving]
